FAERS Safety Report 8357178-7 (Version None)
Quarter: 2012Q2

REPORT INFORMATION
  Report Type: 
  Country: None (occurrence: None)
  Receive Date: 20120514
  Receipt Date: 20120509
  Transmission Date: 20120825
  Serious: Yes (Disabling, Other)
  Sender: FDA-Public Use
  Company Number: US-PFIZER INC-2012088523

PATIENT
  Sex: Male
  Weight: 79.365 kg

DRUGS (2)
  1. ARTHROTEC [Suspect]
     Indication: ARTHRITIS
     Dosage: 200/75 MCG/MG, 2X/DAY
     Route: 048
     Dates: start: 20070101
  2. PREVACID [Concomitant]
     Indication: GASTROOESOPHAGEAL REFLUX DISEASE
     Dosage: UNK

REACTIONS (3)
  - AMYOTROPHIC LATERAL SCLEROSIS [None]
  - SLEEP APNOEA SYNDROME [None]
  - WEIGHT DECREASED [None]
